FAERS Safety Report 6334520 (Version 4)
Quarter: 2013Q4

REPORT INFORMATION
  Report Type: Report from Study
  Country: US (occurrence: US)
  Receive Date: 20070615
  Receipt Date: 20131217
  Transmission Date: 20140711
  Serious: No
  Sender: FDA-Public Use
  Company Number: US-GILEAD-2007-0012398

PATIENT
  Age: 27 Year
  Sex: Female

DRUGS (3)
  1. EFAVIRENZ/EMTRICITABINE/TENOFOVIR DISOPROXIL FUMARATE [Suspect]
     Indication: HIV INFECTION
     Route: 048
     Dates: start: 20061128, end: 20070604
  2. ZIDOVUDINE [Concomitant]
     Indication: HIV INFECTION
     Route: 042
     Dates: start: 20070605, end: 20070605
  3. ZIDOVUDINE [Concomitant]
     Dosage: 1 MG, QD
     Route: 042
     Dates: start: 20070605, end: 20070605

REACTIONS (2)
  - Ultrasound antenatal screen abnormal [Recovered/Resolved]
  - Pregnancy [Recovered/Resolved]
